FAERS Safety Report 12577948 (Version 1)
Quarter: 2016Q3

REPORT INFORMATION
  Report Type: Spontaneous
  Country: US (occurrence: None)
  Receive Date: 20160720
  Receipt Date: 20160720
  Transmission Date: 20161109
  Serious: Yes (Other)
  Sender: FDA-Public Use
  Company Number: None

PATIENT
  Age: 67 Year
  Sex: Female
  Weight: 136.08 kg

DRUGS (1)
  1. CIPROFLOXACIN, 250 MG MFG PACK [Suspect]
     Active Substance: CIPROFLOXACIN
     Indication: URINARY TRACT INFECTION
     Dosage: 14 TABLETS TWICE A DAY
     Route: 048
     Dates: start: 20160711, end: 20160714

REACTIONS (8)
  - Therapy cessation [None]
  - Pain in extremity [None]
  - Headache [None]
  - Gait disturbance [None]
  - Diarrhoea [None]
  - Vomiting [None]
  - Nausea [None]
  - Back pain [None]

NARRATIVE: CASE EVENT DATE: 20160717
